FAERS Safety Report 23203973 (Version 1)
Quarter: 2023Q4

REPORT INFORMATION
  Report Type: Spontaneous
  Country: JP (occurrence: JP)
  Receive Date: 20231120
  Receipt Date: 20231120
  Transmission Date: 20240110
  Serious: No
  Sender: FDA-Public Use
  Company Number: JP-ALKEM LABORATORIES LIMITED-JP-ALKEM-2022-11404

PATIENT
  Sex: Female

DRUGS (1)
  1. MINOCYCLINE [Suspect]
     Active Substance: MINOCYCLINE HYDROCHLORIDE
     Indication: Salpingitis
     Dosage: UNK
     Route: 048

REACTIONS (6)
  - Dyspnoea [Unknown]
  - Pruritus [Unknown]
  - Burning sensation [Unknown]
  - Erythema [Unknown]
  - Generalised oedema [Unknown]
  - Blood pressure decreased [Unknown]
